FAERS Safety Report 7330817-5 (Version None)
Quarter: 2011Q1

REPORT INFORMATION
  Report Type: 
  Country: None (occurrence: None)
  Receive Date: 20110304
  Receipt Date: 20110301
  Transmission Date: 20110831
  Serious: No
  Sender: FDA-Public Use
  Company Number: US-PFIZER INC-2011028758

PATIENT
  Sex: Female
  Weight: 77 kg

DRUGS (10)
  1. CHANTIX [Suspect]
     Indication: SMOKING CESSATION THERAPY
     Dosage: 0.5 MG, 1X/DAY
     Route: 048
     Dates: start: 20080601
  2. SYNTHROID [Suspect]
     Indication: HYPOTHYROIDISM
     Dosage: 0.125 MG, UNK
  3. PULMICORT [Concomitant]
     Dosage: UNK
  4. CITALOPRAM [Concomitant]
     Dosage: UNK
  5. CHANTIX [Suspect]
     Dosage: 0.5 MG, 2X/DAY
     Route: 048
     Dates: start: 20110201, end: 20110101
  6. SIMVASTATIN [Concomitant]
     Dosage: UNK
  7. CHANTIX [Suspect]
     Dosage: 0.5 MG, 2X/DAY
     Route: 048
     Dates: start: 20080601, end: 20080601
  8. ALBUTEROL [Concomitant]
     Dosage: UNK
  9. PAXIL [Concomitant]
     Indication: DEPRESSION
     Dosage: 5 MG, DAILY
  10. SPIRIVA [Concomitant]
     Dosage: UNK

REACTIONS (6)
  - DISORIENTATION [None]
  - IMPAIRED DRIVING ABILITY [None]
  - DIZZINESS [None]
  - MALAISE [None]
  - NAUSEA [None]
  - PANIC ATTACK [None]
